FAERS Safety Report 9293436 (Version 2)
Quarter: 2013Q2

REPORT INFORMATION
  Report Type: Report from Study
  Country: JP (occurrence: JP)
  Receive Date: 20130516
  Receipt Date: 20130604
  Transmission Date: 20140414
  Serious: Yes (Other)
  Sender: FDA-Public Use
  Company Number: JP-GILEAD-2013-0075230

PATIENT
  Sex: Female

DRUGS (15)
  1. AMBRISENTAN [Suspect]
     Indication: SKIN ULCER
     Dosage: 10 MG, QD
     Route: 048
     Dates: start: 20130113, end: 20130309
  2. AMBRISENTAN [Suspect]
     Dosage: 5 MG, QD
     Route: 048
     Dates: start: 20120313, end: 20130112
  3. PROCYLIN [Concomitant]
     Dosage: UNK
     Route: 048
  4. PREDNISOLONE [Concomitant]
     Route: 048
  5. GASMOTIN [Concomitant]
     Route: 048
  6. EPADEL                             /01682401/ [Concomitant]
     Route: 048
  7. JUVELA N [Concomitant]
     Route: 048
  8. PARIET [Concomitant]
     Route: 048
  9. MUCOSOLVAN [Concomitant]
     Route: 048
  10. BAYASPIRIN [Concomitant]
     Route: 048
  11. PLAVIX [Concomitant]
     Route: 048
  12. LIVALO [Concomitant]
     Route: 048
  13. FERROMIA                           /00023516/ [Concomitant]
     Route: 048
  14. VASOLAN                            /00014302/ [Concomitant]
     Route: 048
  15. PROGRAF [Concomitant]
     Route: 048

REACTIONS (1)
  - Organising pneumonia [Recovered/Resolved]
